FAERS Safety Report 9341026 (Version 1)
Quarter: 2013Q2

REPORT INFORMATION
  Report Type: Spontaneous
  Country: US (occurrence: US)
  Receive Date: 20130610
  Receipt Date: 20130610
  Transmission Date: 20140414
  Serious: Yes (Other)
  Sender: FDA-Public Use
  Company Number: PHHY2013US057884

PATIENT
  Age: 83 Year
  Sex: Female

DRUGS (1)
  1. ACETYLSALICYLIC ACID [Suspect]
     Route: 048

REACTIONS (2)
  - Oesophageal haemorrhage [Not Recovered/Not Resolved]
  - Drug hypersensitivity [Not Recovered/Not Resolved]
